FAERS Safety Report 20977461 (Version 3)
Quarter: 2022Q3

REPORT INFORMATION
  Report Type: Spontaneous
  Country: CA (occurrence: CA)
  Receive Date: 20220617
  Receipt Date: 20220725
  Transmission Date: 20221026
  Serious: Yes (Other)
  Sender: FDA-Public Use
  Company Number: CA-CELLTRION INC.-2022CA007372

PATIENT

DRUGS (5)
  1. INFLECTRA [Suspect]
     Active Substance: INFLIXIMAB-DYYB
     Indication: Crohn^s disease
     Dosage: 5MG/KG, INDUCTION WEEK 0, 2, 6MAINTENANCE EVERY 8 WEEKS
     Route: 042
     Dates: start: 20220221, end: 20220408
  2. INFLECTRA [Suspect]
     Active Substance: INFLIXIMAB-DYYB
     Dosage: 5 MG/KG, INDUCTION WEEK 0, 2, 6MAINTENANCE EVERY 8 WEEKS
     Route: 042
     Dates: start: 20220307
  3. INFLECTRA [Suspect]
     Active Substance: INFLIXIMAB-DYYB
     Dosage: 5 MG/KG, INDUCTION WEEK 0, 2, 6MAINTENANCE EVERY 8 WEEKS
     Route: 042
     Dates: start: 20220408
  4. INFLECTRA [Suspect]
     Active Substance: INFLIXIMAB-DYYB
     Dosage: 10 MG/KG EVERY 8 WEEKS
     Route: 042
     Dates: start: 20220607, end: 20220607
  5. PREDNISONE [Concomitant]
     Active Substance: PREDNISONE
     Indication: Crohn^s disease
     Dosage: 1 DF DOSAGE NOT AVAILABLESTATUS: DISCONTINUED
     Dates: start: 202202, end: 20220404

REACTIONS (12)
  - Hot flush [Unknown]
  - Nausea [Unknown]
  - Dyspnoea [Unknown]
  - Rash [Unknown]
  - Skin plaque [Unknown]
  - Rash erythematous [Unknown]
  - Ear pain [Unknown]
  - Headache [Unknown]
  - C-reactive protein increased [Not Recovered/Not Resolved]
  - Faecal calprotectin increased [Not Recovered/Not Resolved]
  - Infusion related reaction [Unknown]
  - Therapy non-responder [Unknown]

NARRATIVE: CASE EVENT DATE: 20220101
